FAERS Safety Report 20621325 (Version 5)
Quarter: 2022Q3

REPORT INFORMATION
  Report Type: Report from Study
  Country: US (occurrence: US)
  Receive Date: 20220322
  Receipt Date: 20220902
  Transmission Date: 20221027
  Serious: Yes (Hospitalization, Other)
  Sender: FDA-Public Use
  Company Number: US-PFIZER INC-202200322521

PATIENT
  Age: 67 Year
  Sex: Female

DRUGS (5)
  1. IBRANCE [Suspect]
     Active Substance: PALBOCICLIB
     Indication: Breast cancer female
     Dosage: 125 MG, CYCLIC (DAILY 21/7)
     Route: 048
     Dates: start: 20220215, end: 202203
  2. IBRANCE [Suspect]
     Active Substance: PALBOCICLIB
     Dosage: 100 MG, CYCLIC (100 MG DAILY 21/7)
     Route: 048
     Dates: start: 20220322
  3. IBRANCE [Suspect]
     Active Substance: PALBOCICLIB
     Dosage: 100 MG, CYCLIC (21 DAYS ON/7 DAYS OFF)
     Route: 048
     Dates: start: 202203
  4. FEMARA [Concomitant]
     Active Substance: LETROZOLE
     Dosage: UNK, DAILY
  5. LETROZOLE [Concomitant]
     Active Substance: LETROZOLE
     Dosage: UNK

REACTIONS (6)
  - Lymphoedema [Recovered/Resolved]
  - Infection [Recovered/Resolved]
  - Neuropathy peripheral [Recovered/Resolved]
  - Nausea [Not Recovered/Not Resolved]
  - Epistaxis [Recovering/Resolving]
  - Fatigue [Not Recovered/Not Resolved]

NARRATIVE: CASE EVENT DATE: 20220101
